FAERS Safety Report 5093181-0 (Version None)
Quarter: 2006Q3

REPORT INFORMATION
  Report Type: 
  Country: None (occurrence: None)
  Receive Date: 20060728
  Receipt Date: 20060630
  Transmission Date: 20061208
  Serious: No
  Sender: FDA-Public Use
  Company Number: 254582

PATIENT
  Age: 60 Year
  Sex: Male
  Weight: 81.6 kg

DRUGS (2)
  1. LEVEMIR FLEXPEN(INSULIN DETEMIR) SOLUTION FOR INJECTION, .0024MOL/L [Suspect]
     Indication: INSULIN-REQUIRING TYPE II DIABETES MELLITUS
     Dosage: 9 LU, QD, SUBCUTANEOUS
     Route: 058
     Dates: start: 20060301
  2. NOVOLOG (INSULIN ASPART) SOLUTON FOR INJECTION, 100 U/ML [Concomitant]

REACTIONS (1)
  - BLOOD GLUCOSE INCREASED [None]
